FAERS Safety Report 19133552 (Version 1)
Quarter: 2021Q2

REPORT INFORMATION
  Report Type: Spontaneous
  Country: US (occurrence: US)
  Receive Date: 20210413
  Receipt Date: 20210413
  Transmission Date: 20210717
  Serious: Yes (Hospitalization)
  Sender: FDA-Public Use
  Company Number: None

PATIENT
  Age: 59 Year
  Sex: Male

DRUGS (18)
  1. FERROUS SULFATE. [Concomitant]
     Active Substance: FERROUS SULFATE
  2. VENTOLIN HFA [Concomitant]
     Active Substance: ALBUTEROL SULFATE
  3. VITAMIN B?1 [Concomitant]
     Active Substance: THIAMINE HYDROCHLORIDE
  4. HUMULIN NPE [Concomitant]
  5. WIXELA INHUB [Concomitant]
     Active Substance: FLUTICASONE PROPIONATE\SALMETEROL XINAFOATE
  6. SPIRONOLACTONE. [Concomitant]
     Active Substance: SPIRONOLACTONE
  7. ATORVASTATIN [Concomitant]
     Active Substance: ATORVASTATIN
  8. FOLIC ACID. [Concomitant]
     Active Substance: FOLIC ACID
  9. HUMULIN R [Concomitant]
     Active Substance: INSULIN HUMAN
  10. DIGOXIN. [Concomitant]
     Active Substance: DIGOXIN
  11. MVI [Concomitant]
     Active Substance: VITAMINS
  12. TADALAFIL. [Concomitant]
     Active Substance: TADALAFIL
  13. ALFUZOSIN [Concomitant]
     Active Substance: ALFUZOSIN
  14. AMBRISENTAN 5MG TABLETS 30/BO: 5MG [Suspect]
     Active Substance: AMBRISENTAN
     Indication: PULMONARY HYPERTENSION
     Route: 048
     Dates: start: 20180222
  15. UPTRAVI [Concomitant]
     Active Substance: SELEXIPAG
  16. BUMETANIDE. [Concomitant]
     Active Substance: BUMETANIDE
  17. GABAPENTIN. [Concomitant]
     Active Substance: GABAPENTIN
  18. ZOFRAN [Concomitant]
     Active Substance: ONDANSETRON HYDROCHLORIDE

REACTIONS (7)
  - Packed red blood cell transfusion [None]
  - Gastrointestinal haemorrhage [None]
  - Drug abuse [None]
  - Anaemia [None]
  - Melaena [None]
  - Hypotension [None]
  - Alcohol use [None]

NARRATIVE: CASE EVENT DATE: 20210319
